FAERS Safety Report 8541156-9 (Version None)
Quarter: 2012Q3

REPORT INFORMATION
  Report Type: 
  Country: None (occurrence: None)
  Receive Date: 20120726
  Receipt Date: 20120720
  Transmission Date: 20120928
  Serious: Yes (Hospitalization)
  Sender: FDA-Public Use
  Company Number: US-GILEAD-2012-0056423

PATIENT
  Sex: Male

DRUGS (2)
  1. LETAIRIS [Suspect]
     Indication: PRODUCT USED FOR UNKNOWN INDICATION
     Dosage: 10 MG, UNK
     Route: 048
  2. TYVASO [Suspect]

REACTIONS (5)
  - SPEECH DISORDER [None]
  - CHEST DISCOMFORT [None]
  - FEELING ABNORMAL [None]
  - ASTHENIA [None]
  - THROAT IRRITATION [None]
